FAERS Safety Report 9730800 (Version 2)
Quarter: 2013Q4

REPORT INFORMATION
  Report Type: Spontaneous
  Country: US (occurrence: US)
  Receive Date: 20131202
  Receipt Date: 20131205
  Transmission Date: 20140711
  Serious: Yes (Hospitalization)
  Sender: FDA-Public Use
  Company Number: US-BAXTER-2013BAX047194

PATIENT
  Age: 63 Year
  Sex: Male

DRUGS (1)
  1. 0.9% SODIUM CHLORIDE INJECTION [Suspect]
     Indication: HAEMODIALYSIS
     Route: 065
     Dates: start: 2012

REACTIONS (3)
  - Femur fracture [Recovering/Resolving]
  - Pneumonia [Recovered/Resolved]
  - Fall [Recovered/Resolved]
